FAERS Safety Report 9297461 (Version 2)
Quarter: 2013Q2

REPORT INFORMATION
  Report Type: Report from Study
  Country: JP (occurrence: JP)
  Receive Date: 20130520
  Receipt Date: 20130626
  Transmission Date: 20140414
  Serious: Yes (Death)
  Sender: FDA-Public Use
  Company Number: JP-ROCHE-1225726

PATIENT
  Age: 84 Year
  Sex: Male

DRUGS (8)
  1. METHOXY POLYETHYLENE GLYCOL-EPOETIN BETA [Suspect]
     Indication: NEPHROGENIC ANAEMIA
     Route: 042
     Dates: start: 20121103, end: 20121103
  2. URSO [Concomitant]
     Indication: HEPATITIS C
     Route: 048
     Dates: end: 20121114
  3. TAMSULOSIN HYDROCHLORIDE [Concomitant]
     Route: 048
     Dates: end: 20121114
  4. DIART [Concomitant]
     Route: 048
     Dates: end: 20121114
  5. LANSOPRAZOLE [Concomitant]
     Route: 048
     Dates: end: 20121114
  6. LIVACT [Concomitant]
     Route: 048
     Dates: end: 20121114
  7. KREMEZIN [Concomitant]
     Indication: DIABETIC NEPHROPATHY
     Route: 048
     Dates: end: 20121114
  8. HANP [Concomitant]
     Route: 041
     Dates: start: 20121027, end: 20121107

REACTIONS (1)
  - Hepatic cirrhosis [Fatal]
